FAERS Safety Report 5465267-X (Version None)
Quarter: 2007Q3

REPORT INFORMATION
  Report Type: 
  Country: None (occurrence: None)
  Receive Date: 20070924
  Receipt Date: 20070831
  Transmission Date: 20080115
  Serious: Yes (Death, Hospitalization)
  Sender: FDA-Public Use
  Company Number: PHHO2006US22112

PATIENT
  Age: 89 Year
  Weight: 49 kg

DRUGS (4)
  1. LOTREL [Suspect]
     Indication: HYPERTENSION
     Dosage: UNK, LEVEL 1
     Route: 048
     Dates: start: 20050215
  2. LOTREL [Suspect]
     Dosage: UNK, LEVEL 3
     Route: 048
  3. LASIX [Concomitant]
     Indication: HYPERTENSION
     Dosage: 20 MG
     Dates: start: 20050305
  4. GUANFACINE HYDROCHLORIDE [Concomitant]
     Indication: HYPERTENSION
     Dosage: 1 MG
     Dates: start: 20060303

REACTIONS (7)
  - ATRIAL FIBRILLATION [None]
  - CEREBROVASCULAR ACCIDENT [None]
  - CORONARY ARTERY DISEASE [None]
  - FALL [None]
  - HEAD INJURY [None]
  - HYPERTENSIVE HEART DISEASE [None]
  - LOSS OF CONSCIOUSNESS [None]
